FAERS Safety Report 7357918-X (Version None)
Quarter: 2011Q1

REPORT INFORMATION
  Report Type: 
  Country: None (occurrence: None)
  Receive Date: 20110317
  Receipt Date: 20110307
  Transmission Date: 20110831
  Serious: Yes (Life-Threatening, Hospitalization, Disabling)
  Sender: FDA-Public Use
  Company Number: GB-JNJFOC-20110303232

PATIENT
  Age: 15 Year
  Sex: Female
  Weight: 68 kg

DRUGS (9)
  1. SIMULECT [Suspect]
     Indication: CROHN'S DISEASE
     Dosage: ^1 / 2WEEK^
  2. INFLIXIMAB, RECOMBINANT [Suspect]
     Indication: CROHN'S DISEASE
     Route: 042
  3. SIMULECT [Suspect]
     Indication: IMMUNOSUPPRESSION
     Dosage: ^1 / 2WEEK^
  4. INFLIXIMAB, RECOMBINANT [Suspect]
     Indication: IMMUNOSUPPRESSION
     Route: 042
  5. SIMULECT [Suspect]
     Indication: STEM CELL TRANSPLANT
     Dosage: ^1 / 2WEEK^
  6. INFLIXIMAB, RECOMBINANT [Suspect]
     Indication: STEM CELL TRANSPLANT
     Route: 042
  7. METHOTREXATE [Concomitant]
     Indication: PRODUCT USED FOR UNKNOWN INDICATION
  8. THALIDOMIDE [Concomitant]
     Indication: PRODUCT USED FOR UNKNOWN INDICATION
  9. URSODIOL [Concomitant]
     Indication: PRODUCT USED FOR UNKNOWN INDICATION

REACTIONS (3)
  - KLEBSIELLA SEPSIS [None]
  - RENAL FAILURE ACUTE [None]
  - EXTREMITY NECROSIS [None]
